FAERS Safety Report 6591379-3 (Version None)
Quarter: 2010Q1

REPORT INFORMATION
  Report Type: 
  Country: None (occurrence: None)
  Receive Date: 20100219
  Receipt Date: 20100209
  Transmission Date: 20100710
  Serious: Yes (Other)
  Sender: FDA-Public Use
  Company Number: US-JNJCH-2010004004

PATIENT
  Age: 56 Year
  Sex: Female
  Weight: 52.2 kg

DRUGS (2)
  1. ROLAIDS MULTI-SYMPTOM [Suspect]
     Indication: FLATULENCE
     Dosage: TEXT:UNSPECIFIED
     Route: 048
  2. TYLENOL-500 [Concomitant]
     Indication: PAIN
     Dosage: TEXT:2 CAPLETS EVERY 8 HOURS
     Route: 048

REACTIONS (4)
  - GASTROINTESTINAL DISORDER [None]
  - GASTROINTESTINAL INFLAMMATION [None]
  - SPHINCTER OF ODDI DYSFUNCTION [None]
  - WEIGHT DECREASED [None]
